FAERS Safety Report 12115769 (Version 2)
Quarter: 2016Q1

REPORT INFORMATION
  Report Type: Spontaneous
  Country: US (occurrence: US)
  Receive Date: 20160225
  Receipt Date: 20160317
  Transmission Date: 20160526
  Serious: Yes (Other)
  Sender: FDA-Public Use
  Company Number: US-PFIZER INC-2016098212

PATIENT
  Age: 91 Year
  Sex: Male
  Weight: 71.67 kg

DRUGS (1)
  1. SUTENT [Suspect]
     Active Substance: SUNITINIB MALATE
     Indication: SARCOMA
     Dosage: 37.5 MG, 1X/DAY
     Route: 048
     Dates: start: 201601, end: 20160128

REACTIONS (5)
  - Erythema [Unknown]
  - Rash [Unknown]
  - Dry skin [Unknown]
  - Leukopenia [Unknown]
  - Product use issue [Unknown]

NARRATIVE: CASE EVENT DATE: 201601
